FAERS Safety Report 5206217-0 (Version None)
Quarter: 2007Q1

REPORT INFORMATION
  Report Type: 
  Country: None (occurrence: None)
  Receive Date: 20070109
  Receipt Date: 20061222
  Transmission Date: 20070707
  Serious: Yes (Life-Threatening)
  Sender: FDA-Public Use
  Company Number: 070102204

PATIENT
  Age: 15 Year
  Sex: Female
  Weight: 43.5453 kg

DRUGS (1)
  1. DELSYM [Suspect]
     Indication: COUGH
     Dosage: 1TSP, BID, ORAL
     Route: 048
     Dates: start: 20061218, end: 20061219

REACTIONS (4)
  - ASTHENIA [None]
  - CONVULSION [None]
  - DYSKINESIA [None]
  - TREMOR [None]
